FAERS Safety Report 15622317 (Version 9)
Quarter: 2019Q3

REPORT INFORMATION
  Report Type: Report from Study
  Country: CA (occurrence: CA)
  Receive Date: 20181115
  Receipt Date: 20190917
  Transmission Date: 20191004
  Serious: Yes (Hospitalization, Other)
  Sender: FDA-Public Use
  Company Number: CA-SA-2018SA160814

PATIENT
  Age: 40 Year
  Sex: Male

DRUGS (13)
  1. GRAVOL [Concomitant]
     Active Substance: DIMENHYDRINATE
     Indication: PREMEDICATION
     Dosage: 50 MG, PRN (PO/IV)
     Dates: start: 20180611
  2. ACYCLOVIR [ACICLOVIR] [Concomitant]
     Active Substance: ACYCLOVIR
     Indication: PREMEDICATION
     Dosage: 200 MG, BID
     Route: 048
     Dates: start: 20180611
  3. SENOKOT [Concomitant]
     Active Substance: SENNOSIDES
     Indication: CONSTIPATION
     Dosage: 8.6 MG, QD
     Route: 048
  4. METHYLPREDNISOLONE. [Concomitant]
     Active Substance: METHYLPREDNISOLONE
     Indication: PREMEDICATION
     Dosage: 1 G, UNK
     Route: 042
     Dates: start: 20180611, end: 20180613
  5. LORAZEPAM. [Concomitant]
     Active Substance: LORAZEPAM
     Dosage: UNK, UNK
     Route: 048
  6. BENADRYL [Concomitant]
     Active Substance: DIPHENHYDRAMINE HYDROCHLORIDE
     Indication: PREMEDICATION
     Dosage: 50 MG, UNK, (PO/IV)
     Dates: start: 20180611, end: 20180613
  7. DOXEPIN [Concomitant]
     Active Substance: DOXEPIN
     Indication: HYPERSENSITIVITY
     Dosage: 10 MG, QD
     Route: 048
  8. ALEMTUZUMAB [Suspect]
     Active Substance: ALEMTUZUMAB
     Indication: RELAPSING-REMITTING MULTIPLE SCLEROSIS
     Dosage: 12 MG, QD
     Route: 041
     Dates: start: 20180611, end: 20180613
  9. TAPAZOLE [Concomitant]
     Active Substance: METHIMAZOLE
     Indication: HYPERTHYROIDISM
     Dosage: UNK UNK, QD
     Route: 048
  10. CIMETIDINE [Concomitant]
     Active Substance: CIMETIDINE
     Indication: PREMEDICATION
     Dosage: 200 MG, UNK
     Route: 048
     Dates: start: 20180611, end: 20180613
  11. ESCITALOPRAM [Concomitant]
     Active Substance: ESCITALOPRAM OXALATE
     Dosage: UNK, QD
     Route: 048
  12. TYLENOL [Concomitant]
     Active Substance: ACETAMINOPHEN
     Indication: PREMEDICATION
     Dosage: 975-1000 MG, PRN
     Route: 048
     Dates: start: 20180611
  13. DILANTIN [Concomitant]
     Active Substance: PHENYTOIN
     Indication: SEIZURE
     Dosage: 300 MG, QD
     Route: 048

REACTIONS (23)
  - Anxiety [Recovered/Resolved]
  - Chills [Recovered/Resolved]
  - Electrocardiogram PR prolongation [Unknown]
  - Urine abnormality [Not Recovered/Not Resolved]
  - Neutropenia [Recovered/Resolved]
  - Tremor [Recovered/Resolved]
  - Vomiting [Recovered/Resolved]
  - Atrioventricular block first degree [Unknown]
  - Confusional state [Recovered/Resolved]
  - Suicidal ideation [Recovered/Resolved]
  - Red blood cell count decreased [Not Recovered/Not Resolved]
  - Contusion [Recovered/Resolved]
  - Depression [Recovered/Resolved]
  - Blood uric acid decreased [Unknown]
  - White blood cell count decreased [Recovered/Resolved]
  - Sinus bradycardia [Unknown]
  - Haemoglobin decreased [Not Recovered/Not Resolved]
  - Culture urine positive [Not Recovered/Not Resolved]
  - Pyrexia [Recovered/Resolved]
  - Fall [Recovered/Resolved]
  - Neutrophil count decreased [Recovered/Resolved]
  - Haematocrit decreased [Not Recovered/Not Resolved]
  - Lymphocyte count decreased [Not Recovered/Not Resolved]

NARRATIVE: CASE EVENT DATE: 20180611
